FAERS Safety Report 19153713 (Version 2)
Quarter: 2021Q2

REPORT INFORMATION
  Report Type: Spontaneous
  Country: US (occurrence: US)
  Receive Date: 20210419
  Receipt Date: 20210503
  Transmission Date: 20210717
  Serious: No
  Sender: FDA-Public Use
  Company Number: US-BAYER-2021-124393

PATIENT
  Age: 47 Year
  Sex: Female

DRUGS (2)
  1. MIRENA [Suspect]
     Active Substance: LEVONORGESTREL
     Indication: HEAVY MENSTRUAL BLEEDING
     Dosage: 20 ?G PER DAY CONTINOUSLY
     Route: 015
     Dates: start: 20210415, end: 20210415
  2. MIRENA [Suspect]
     Active Substance: LEVONORGESTREL
     Indication: CONTRACEPTION
     Dosage: 20 ?G PER DAY CONTINOUSLY
     Route: 015

REACTIONS (6)
  - Complication of device insertion [None]
  - Procedural pain [None]
  - Device use issue [None]
  - Post procedural complication [None]
  - Procedural pain [None]
  - Device issue [None]

NARRATIVE: CASE EVENT DATE: 20210415
